FAERS Safety Report 23967138 (Version 1)
Quarter: 2024Q2

REPORT INFORMATION
  Report Type: Spontaneous
  Country: IT (occurrence: IT)
  Receive Date: 20240612
  Receipt Date: 20240612
  Transmission Date: 20240716
  Serious: Yes (Hospitalization)
  Sender: FDA-Public Use
  Company Number: None

PATIENT
  Age: 17 Year
  Sex: Male

DRUGS (3)
  1. ALPRAZOLAM [Suspect]
     Active Substance: ALPRAZOLAM
     Indication: Product used for unknown indication
     Route: 065
  2. LITHIUM SULFATE [Concomitant]
     Active Substance: LITHIUM SULFATE
     Indication: Schizotypal personality disorder
     Dosage: 83 MG/DAY, I DON^T KNOW THE START OF THERAPY
     Route: 048
  3. OLANZAPINE [Concomitant]
     Active Substance: OLANZAPINE
     Indication: Schizotypal personality disorder
     Dosage: 15MG/DAY, I DON^T KNOW THE START OF THERAPY
     Route: 048
     Dates: end: 19700101

REACTIONS (1)
  - Intentional self-injury [Recovered/Resolved]

NARRATIVE: CASE EVENT DATE: 20240518
